FAERS Safety Report 6649759-3 (Version None)
Quarter: 2010Q1

REPORT INFORMATION
  Report Type: 
  Country: None (occurrence: None)
  Receive Date: 20100324
  Receipt Date: 20100324
  Transmission Date: 20100710
  Serious: Yes (Other)
  Sender: FDA-Public Use
  Company Number: None

PATIENT
  Sex: Female
  Weight: 52.1637 kg

DRUGS (3)
  1. AMBIEN [Suspect]
  2. PAXIL [Suspect]
  3. PREDNISONE [Suspect]

REACTIONS (10)
  - AGGRESSION [None]
  - DRUG DEPENDENCE [None]
  - DRUG PRESCRIBING ERROR [None]
  - FEELING ABNORMAL [None]
  - HYPOMANIA [None]
  - PANIC REACTION [None]
  - PERSONALITY CHANGE [None]
  - PSYCHOTIC DISORDER [None]
  - SUICIDAL IDEATION [None]
  - SUICIDE ATTEMPT [None]
